FAERS Safety Report 15122117 (Version 1)
Quarter: 2018Q3

REPORT INFORMATION
  Report Type: Spontaneous
  Country: US (occurrence: US)
  Receive Date: 20180709
  Receipt Date: 20180709
  Transmission Date: 20181010
  Serious: No
  Sender: FDA-Public Use
  Company Number: US-BAYER-2018-120627

PATIENT
  Age: 51 Year
  Sex: Female
  Weight: 66.67 kg

DRUGS (4)
  1. ALEVE [Suspect]
     Active Substance: NAPROXEN SODIUM
     Dosage: 2 DF, QD
     Route: 048
  2. ALEVE [Suspect]
     Active Substance: NAPROXEN SODIUM
     Dosage: 1 DF, QD
     Route: 048
  3. ALEVE [Suspect]
     Active Substance: NAPROXEN SODIUM
     Dosage: 1 DF, QD
     Route: 048
  4. TRAMADOL. [Suspect]
     Active Substance: TRAMADOL
     Dosage: UNK

REACTIONS (10)
  - Hair texture abnormal [Recovered/Resolved]
  - Weight loss poor [Recovered/Resolved]
  - Product use issue [Unknown]
  - Drug ineffective [None]
  - Off label use [Unknown]
  - Alopecia [Recovered/Resolved]
  - Hair growth abnormal [Recovered/Resolved]
  - Flatulence [Recovered/Resolved]
  - Trichorrhexis [Recovered/Resolved]
  - Product use in unapproved indication [Unknown]
